FAERS Safety Report 8476206-1 (Version None)
Quarter: 2012Q2

REPORT INFORMATION
  Report Type: 
  Country: None (occurrence: None)
  Receive Date: 20120628
  Receipt Date: 20120620
  Transmission Date: 20120825
  Serious: Yes (Other)
  Sender: FDA-Public Use
  Company Number: US-ACTELION-A-US2011-56636

PATIENT

DRUGS (5)
  1. VITAMIN D [Concomitant]
  2. TRACLEER [Suspect]
     Indication: PULMONARY ARTERIAL HYPERTENSION
     Dosage: 125 MG, BID
     Route: 048
     Dates: start: 20110202, end: 20111101
  3. DOCUSATE CALCIUM [Concomitant]
  4. RIBOFLAVIN [Concomitant]
  5. NORCO [Concomitant]

REACTIONS (3)
  - FOETAL DISORDER [None]
  - PLEURAL EFFUSION [None]
  - PREGNANCY [None]
